FAERS Safety Report 8348688-7 (Version None)
Quarter: 2012Q2

REPORT INFORMATION
  Report Type: 
  Country: None (occurrence: None)
  Receive Date: 20120510
  Receipt Date: 20120427
  Transmission Date: 20120825
  Serious: Yes (Hospitalization)
  Sender: FDA-Public Use
  Company Number: US-ELI_LILLY_AND_COMPANY-US201205000146

PATIENT
  Age: 70 Year
  Sex: Female

DRUGS (9)
  1. COUMADIN [Concomitant]
  2. CLONAZEPAM [Concomitant]
  3. OXYCODONE HCL [Concomitant]
  4. PROZAC [Concomitant]
  5. FORTEO [Suspect]
     Indication: OSTEOPOROSIS
     Dosage: UNK, QD
     Dates: end: 20120215
  6. LORAZEPAM [Concomitant]
  7. FORTEO [Suspect]
     Dosage: UNK, QD
     Dates: start: 20120426
  8. CELEBREX [Concomitant]
  9. NEXIUM [Concomitant]

REACTIONS (3)
  - KNEE OPERATION [None]
  - MEDICATION ERROR [None]
  - SPINAL FRACTURE [None]
